FAERS Safety Report 13582732 (Version 1)
Quarter: 2017Q2

REPORT INFORMATION
  Report Type: Spontaneous
  Country: US (occurrence: US)
  Receive Date: 20170525
  Receipt Date: 20170525
  Transmission Date: 20170830
  Serious: No
  Sender: FDA-Public Use
  Company Number: US-MYLANLABS-2016M1016890

PATIENT
  Sex: Male

DRUGS (1)
  1. TAMSULOSIN HCL CAPSULES, USP [Suspect]
     Active Substance: TAMSULOSIN HYDROCHLORIDE
     Dosage: 0.4 MG, QD
     Route: 048
     Dates: start: 2016

REACTIONS (4)
  - Cough [Not Recovered/Not Resolved]
  - Diarrhoea [Not Recovered/Not Resolved]
  - Back pain [Not Recovered/Not Resolved]
  - Blood pressure increased [Not Recovered/Not Resolved]

NARRATIVE: CASE EVENT DATE: 2016
